FAERS Safety Report 13212959 (Version 1)
Quarter: 2017Q1

REPORT INFORMATION
  Report Type: Spontaneous
  Country: US (occurrence: US)
  Receive Date: 20170210
  Receipt Date: 20170210
  Transmission Date: 20170428
  Serious: Yes (Hospitalization, Other)
  Sender: FDA-Public Use
  Company Number: US-SAOL THERAPEUTICS-2017SAO00118

PATIENT
  Sex: Female

DRUGS (1)
  1. LIORESAL [Suspect]
     Active Substance: BACLOFEN
     Dosage: 450 ?G, \DAY
     Route: 037

REACTIONS (6)
  - Depression [Unknown]
  - Knee operation [Unknown]
  - Mental status changes [Unknown]
  - Constipation [Unknown]
  - Unevaluable event [Unknown]
  - Device malfunction [Unknown]
